FAERS Safety Report 10195982 (Version 1)
Quarter: 2014Q2

REPORT INFORMATION
  Report Type: Report from Study
  Country: MX (occurrence: MX)
  Receive Date: 20140527
  Receipt Date: 20140527
  Transmission Date: 20141212
  Serious: Yes (Life-Threatening, Hospitalization, Other)
  Sender: FDA-Public Use
  Company Number: PHHY2014MX064029

PATIENT
  Age: 32 Year
  Sex: Female

DRUGS (5)
  1. CO-DIOVAN [Suspect]
     Indication: HYPERTENSION
     Dosage: 1.5 TABLET (160/12.5 MG), DAILY
     Route: 048
     Dates: start: 201201
  2. GALVUS MET [Suspect]
     Indication: DIABETES MELLITUS
     Dosage: 2 TABLET (500/50 MG), DAILY
     Route: 048
     Dates: start: 201201
  3. GALVUS MET [Suspect]
     Dosage: 2.5 TABLET (500/50 MG), DAILY
     Route: 048
     Dates: start: 201201
  4. LANTUS [Concomitant]
     Indication: DIABETES MELLITUS
     Dosage: 60 IU, DAILY
  5. KOMBOGLYZE [Concomitant]
     Indication: DIABETES MELLITUS
     Dosage: 1 UKN, DAILY

REACTIONS (6)
  - Diabetes mellitus [Unknown]
  - Blood glucose increased [Not Recovered/Not Resolved]
  - Diabetic neuropathy [Not Recovered/Not Resolved]
  - Pain in extremity [Not Recovered/Not Resolved]
  - Fear of injection [Not Recovered/Not Resolved]
  - Wrong technique in drug usage process [Unknown]
